FAERS Safety Report 14672978 (Version 3)
Quarter: 2019Q3

REPORT INFORMATION
  Report Type: Spontaneous
  Country: US (occurrence: US)
  Receive Date: 20180323
  Receipt Date: 20190904
  Transmission Date: 20191004
  Serious: Yes (Life-Threatening, Hospitalization, Other)
  Sender: FDA-Public Use
  Company Number: US-ACCORD-064665

PATIENT
  Age: 10 Year
  Sex: Female

DRUGS (2)
  1. CISPLATIN. [Concomitant]
     Active Substance: CISPLATIN
     Indication: NASOPHARYNGEAL CANCER STAGE III
     Dosage: NEOADJUVANT CHEMOTHERAPY ON DAY 1 OF HER THERAPY
  2. FLUOROURACIL. [Suspect]
     Active Substance: FLUOROURACIL
     Indication: NASOPHARYNGEAL CANCER
     Dosage: NEOADJUVANT CHEMOTHERAPY, FIRST 96-HOUR FU INFUSION, FU INFUSION WAS STOPPED

REACTIONS (4)
  - Cardiotoxicity [Recovered/Resolved]
  - Respiratory distress [Recovered/Resolved]
  - Cardiac failure [Recovered/Resolved]
  - Off label use [Unknown]
